FAERS Safety Report 13523268 (Version 1)
Quarter: 2017Q2

REPORT INFORMATION
  Report Type: Spontaneous
  Country: US (occurrence: US)
  Receive Date: 20170508
  Receipt Date: 20170508
  Transmission Date: 20170830
  Serious: No
  Sender: FDA-Public Use
  Company Number: US-VIFOR (INTERNATIONAL) INC.-VIT-2017-01378

PATIENT
  Age: 61 Year
  Sex: Male

DRUGS (12)
  1. ATORVASTATIN [Concomitant]
     Active Substance: ATORVASTATIN
  2. DILTIAZEM. [Concomitant]
     Active Substance: DILTIAZEM
  3. NIACIN. [Concomitant]
     Active Substance: NIACIN
  4. VENTOLIN [Concomitant]
     Active Substance: ALBUTEROL SULFATE
  5. OMEGA-3 TRIGLYCERIDES [Concomitant]
  6. SYMBICORT [Concomitant]
     Active Substance: BUDESONIDE\FORMOTEROL FUMARATE DIHYDRATE
  7. TUDORZA PRES AER [Concomitant]
  8. COLECALCIFEROL [Concomitant]
     Active Substance: CHOLECALCIFEROL
  9. VELTASSA [Suspect]
     Active Substance: PATIROMER
     Indication: HYPERKALAEMIA
     Route: 048
     Dates: start: 20160722
  10. PULMOZYME [Concomitant]
     Active Substance: DORNASE ALFA
  11. AMLODIPINE [Concomitant]
     Active Substance: AMLODIPINE BESYLATE
  12. CHLORPHENAMINE MALEATE [Concomitant]
     Active Substance: CHLORPHENIRAMINE MALEATE

REACTIONS (2)
  - Drug dose omission [Unknown]
  - Joint swelling [Unknown]

NARRATIVE: CASE EVENT DATE: 201701
